FAERS Safety Report 7208453-0 (Version None)
Quarter: 2010Q4

REPORT INFORMATION
  Report Type: 
  Country: None (occurrence: None)
  Receive Date: 20101230
  Receipt Date: 20101230
  Transmission Date: 20110411
  Serious: Yes (Hospitalization, Disabling)
  Sender: FDA-Public Use
  Company Number: None

PATIENT
  Age: 24 Year
  Sex: Female
  Weight: 68.0396 kg

DRUGS (2)
  1. OCELLA/YASMIN [Suspect]
     Indication: AMENORRHOEA
     Dosage: 1 TAB DAILY PO
     Route: 048
     Dates: start: 20070101, end: 20091226
  2. OCELLA/YASMIN [Suspect]
     Indication: CONTRACEPTION
     Dosage: 1 TAB DAILY PO
     Route: 048
     Dates: start: 20070101, end: 20091226

REACTIONS (1)
  - ISCHAEMIC STROKE [None]
